FAERS Safety Report 20973696 (Version 1)
Quarter: 2022Q2

REPORT INFORMATION
  Report Type: Spontaneous
  Country: IT (occurrence: IT)
  Receive Date: 20220617
  Receipt Date: 20220617
  Transmission Date: 20220721
  Serious: Yes (Death, Other)
  Sender: FDA-Public Use
  Company Number: IT-OCTA-LIT02022IT

PATIENT
  Age: 45 Year
  Sex: Female

DRUGS (1)
  1. HUMAN IMMUNOGLOBULIN G [Suspect]
     Active Substance: HUMAN IMMUNOGLOBULIN G
     Indication: Guillain-Barre syndrome
     Dosage: 0.4 G/KG/DAY FOR 5 DAYS
     Route: 042

REACTIONS (6)
  - Posterior reversible encephalopathy syndrome [Unknown]
  - Cerebral ischaemia [Fatal]
  - Cerebral haemorrhage [Unknown]
  - Vision blurred [Unknown]
  - Headache [Unknown]
  - Seizure [Unknown]
